FAERS Safety Report 5199644-1 (Version None)
Quarter: 2007Q1

REPORT INFORMATION
  Report Type: 
  Country: None (occurrence: None)
  Receive Date: 20070103
  Receipt Date: 20070103
  Transmission Date: 20070707
  Serious: Yes (Death)
  Sender: FDA-Public Use
  Company Number: None

PATIENT
  Age: 79 Year
  Sex: Female

DRUGS (2)
  1. PLAVIX [Suspect]
     Indication: DRUG THERAPY
     Dosage: 75MG  DAILY  PO
     Route: 048
  2. COUMADIN [Suspect]
     Indication: DRUG THERAPY
     Dosage: 5MG  DAILY  PO
     Route: 048

REACTIONS (8)
  - ATELECTASIS [None]
  - CEREBROVASCULAR ACCIDENT [None]
  - HAEMATOMA [None]
  - HYPERTENSION [None]
  - INTERNATIONAL NORMALISED RATIO INCREASED [None]
  - MENTAL STATUS CHANGES [None]
  - MUSCULAR WEAKNESS [None]
  - PLEURAL EFFUSION [None]
